FAERS Safety Report 5567782-7 (Version None)
Quarter: 2007Q4

REPORT INFORMATION
  Report Type: 
  Country: None (occurrence: None)
  Receive Date: 20071217
  Receipt Date: 20071204
  Transmission Date: 20080405
  Serious: Yes (Other)
  Sender: FDA-Public Use
  Company Number: B0498686A

PATIENT

DRUGS (5)
  1. TOPOTECAN HYDROCHLORIDE INFUSION (GENERIC) (TOPOTECAN) [Suspect]
     Indication: MYELOID LEUKAEMIA
     Dosage: INTRAVENOUS INFUSION
     Route: 042
  2. FLUDARABINE PHOSPHATE [Suspect]
     Indication: MYELOID LEUKAEMIA
     Dosage: INTRAVENOUS INFUSION
     Route: 042
  3. CARBOPLATIN [Suspect]
     Indication: MYELOID LEUKAEMIA
     Dosage: INTRAVENOUS INFUSION
     Route: 042
  4. THALIDOMIDE [Suspect]
     Indication: MYELOID LEUKAEMIA
     Dosage: ORAL
     Route: 048
  5. PYRIDOXINE [Concomitant]

REACTIONS (8)
  - BONE MARROW FAILURE [None]
  - DEEP VEIN THROMBOSIS [None]
  - DISEASE PROGRESSION [None]
  - DRUG TOXICITY [None]
  - ILEUS [None]
  - NEUROPATHY [None]
  - RASH [None]
  - SOMNOLENCE [None]
